FAERS Safety Report 8913337 (Version 3)
Quarter: 2013Q1

REPORT INFORMATION
  Report Type: Spontaneous
  Country: US (occurrence: US)
  Receive Date: 20121116
  Receipt Date: 20130211
  Transmission Date: 20140127
  Serious: Yes (Other)
  Sender: FDA-Public Use
  Company Number: US-PFIZER INC-2012282669

PATIENT
  Age: 73 Year
  Sex: Female

DRUGS (1)
  1. XALATAN [Suspect]
     Dosage: 1 GTT, 1X/DAY

REACTIONS (1)
  - Cerebrovascular accident [Unknown]
